FAERS Safety Report 6818003-6 (Version None)
Quarter: 2010Q3

REPORT INFORMATION
  Report Type: 
  Country: None (occurrence: None)
  Receive Date: 20100706
  Receipt Date: 20100624
  Transmission Date: 20110219
  Serious: Yes (Other)
  Sender: FDA-Public Use
  Company Number: GXKR2010US07025

PATIENT
  Age: 54 Year
  Sex: Female

DRUGS (3)
  1. METHADONE (NGX) [Suspect]
     Dosage: 60 MG, DAILY
     Route: 065
  2. METHADONE (NGX) [Suspect]
     Dosage: 40 MG, DAILY
     Route: 065
  3. ANALGESICS [Concomitant]

REACTIONS (4)
  - ABDOMINAL DISTENSION [None]
  - ABDOMINAL PAIN [None]
  - POSTOPERATIVE ILEUS [None]
  - VOMITING [None]
